FAERS Safety Report 4894251-X (Version None)
Quarter: 2006Q1

REPORT INFORMATION
  Report Type: 
  Country: None (occurrence: None)
  Receive Date: 20060127
  Receipt Date: 20051115
  Transmission Date: 20060701
  Serious: No
  Sender: FDA-Public Use
  Company Number: US-GLAXOSMITHKLINE-A0583253A

PATIENT
  Age: 87 Year
  Sex: Female

DRUGS (4)
  1. WELLBUTRIN [Suspect]
     Indication: DEPRESSION
     Dosage: 150MG PER DAY
     Route: 048
  2. HYZAAR [Concomitant]
     Route: 065
  3. ERYTHROMYCIN [Concomitant]
     Route: 065
  4. GAS X [Concomitant]
     Route: 065

REACTIONS (3)
  - DRY MOUTH [None]
  - DYSPHAGIA [None]
  - INSOMNIA [None]
